FAERS Safety Report 25704404 (Version 1)
Quarter: 2025Q3

REPORT INFORMATION
  Report Type: Spontaneous
  Country: GB (occurrence: GB)
  Receive Date: 20250820
  Receipt Date: 20250820
  Transmission Date: 20251021
  Serious: Yes (Disabling, Other)
  Sender: AUROBINDO
  Company Number: GB-MHRA-MED-202508061440342480-CFYWG

PATIENT
  Sex: Female

DRUGS (2)
  1. SERTRALINE [Suspect]
     Active Substance: SERTRALINE HYDROCHLORIDE
     Indication: Adjustment disorder with mixed anxiety and depressed mood
     Dosage: 100 MILLIGRAM, ONCE A DAY
     Route: 065
     Dates: start: 20230101
  2. QUETIAPINE [Concomitant]
     Active Substance: QUETIAPINE
     Indication: Adjustment disorder with mixed anxiety and depressed mood
     Route: 065
     Dates: start: 20070101

REACTIONS (14)
  - Sexual dysfunction [Not Recovered/Not Resolved]
  - Tinnitus [Not Recovered/Not Resolved]
  - Akathisia [Recovered/Resolved]
  - Electric shock sensation [Recovered/Resolved]
  - Visual snow syndrome [Recovered/Resolved]
  - Vertigo [Recovered/Resolved]
  - Photophobia [Recovered/Resolved]
  - Antidepressant discontinuation syndrome [Recovered/Resolved]
  - Dysaesthesia [Recovered/Resolved]
  - Panic attack [Recovered/Resolved]
  - Insomnia [Recovered/Resolved]
  - Depersonalisation/derealisation disorder [Recovered/Resolved]
  - Dizziness [Recovered/Resolved]
  - Medication error [Unknown]

NARRATIVE: CASE EVENT DATE: 20230201
